FAERS Safety Report 20876894 (Version 1)
Quarter: 2022Q2

REPORT INFORMATION
  Report Type: Spontaneous
  Country: US (occurrence: None)
  Receive Date: 20220525
  Receipt Date: 20220525
  Transmission Date: 20220721
  Serious: No
  Sender: FDA-Public Use
  Company Number: None

PATIENT
  Age: 70 Year
  Sex: Female
  Weight: 69.75 kg

DRUGS (1)
  1. CLINDAMYCIN HYDROCHLORIDE [Suspect]
     Active Substance: CLINDAMYCIN HYDROCHLORIDE
     Indication: Antibiotic therapy
     Dosage: OTHER QUANTITY : 2 CAPSULE(S);?FREQUENCY : 3 TIMES A DAY;?
     Route: 048

REACTIONS (1)
  - Taste disorder [None]

NARRATIVE: CASE EVENT DATE: 20220512
